FAERS Safety Report 5692859-5 (Version None)
Quarter: 2008Q2

REPORT INFORMATION
  Report Type: 
  Country: None (occurrence: None)
  Receive Date: 20080401
  Receipt Date: 20080315
  Transmission Date: 20081010
  Serious: Yes (Other)
  Sender: FDA-Public Use
  Company Number: ADE2008-0161

PATIENT
  Age: 20 Year
  Sex: Female
  Weight: 64 kg

DRUGS (1)
  1. CITALOPRAM HYDROBROMIDE [Suspect]
     Indication: DEPRESSION
     Dosage: 20MG; PO
     Route: 048
     Dates: start: 20071029, end: 20071031

REACTIONS (1)
  - TONIC CLONIC MOVEMENTS [None]
